FAERS Safety Report 7782685-5 (Version None)
Quarter: 2011Q3

REPORT INFORMATION
  Report Type: 
  Country: None (occurrence: None)
  Receive Date: 20110928
  Receipt Date: 20110916
  Transmission Date: 20111222
  Serious: Yes (Hospitalization, Other)
  Sender: FDA-Public Use
  Company Number: JP-UCBSA-040843

PATIENT
  Sex: Female

DRUGS (29)
  1. PREDNISOLONE [Concomitant]
     Dosage: TOTAL DAILY DOSE : 2 MG
     Dates: start: 20090430
  2. FOLIC ACID [Concomitant]
     Dosage: TOTAL DAILY DOSE : 50 MG/WEEK
     Dates: start: 20090828
  3. SENNOSIDE [Concomitant]
     Dosage: TOTAL DAILY DOSE : 24 MG
     Dates: start: 20090723
  4. SODIUM RISEDRONATE HYDRATE [Concomitant]
     Dosage: TOTAL DAILY DOSE : 17.5 MG/WEEK
     Dates: start: 20090416
  5. CALCITRIOL [Concomitant]
     Dates: start: 20101102
  6. VALSARTAN [Concomitant]
     Dosage: TOTAL DAILY DOSE : 80 MG
     Dates: start: 20090710
  7. ISONIAZID [Concomitant]
     Dosage: TOTAL DAILY DOSE : 300 MG
     Dates: start: 20091015
  8. GLIMEPIRIDE [Concomitant]
     Dosage: TOTAL DAILY DOSE : 3 MG
     Dates: start: 20090710
  9. AMLODIPINE BESYLATE [Concomitant]
     Dosage: TOTAL DAILY DOSE :  5 MG
     Dates: start: 20090710
  10. VOGLIBOSE [Concomitant]
     Dosage: TOTAL DAILY DOSE : 0.9 MG
     Dates: start: 20091016
  11. CALCITRIOL [Concomitant]
     Dosage: TOTAL DAILY DOSE : 0.5 MCG
     Dates: start: 20090416
  12. NICORANDIL [Concomitant]
     Dates: start: 20101109
  13. REBAMIPIDE [Concomitant]
     Dates: start: 20090430
  14. MAGNESIUM OXIDE [Concomitant]
     Dates: start: 20110324
  15. LOXOPROFEN SODIUM HYDRATE [Concomitant]
     Dosage: ADEQUATE DOSE P.R.N.
     Dates: start: 20110324
  16. BENIDIPINE HYDROCHLORIDE [Concomitant]
     Dates: start: 20101104
  17. CERTOLIZUMAB PEGOL [Suspect]
     Indication: RHEUMATOID ARTHRITIS
     Dosage: STUDY 275-08-001 : 200 MG/2 WEEKS, PREVIOUS DOSE : UNK TO 12/FEB/2010 : 100 MG/2 WEEKS
     Route: 058
     Dates: start: 20100225
  18. MUCOSTA [Concomitant]
     Dosage: TOTAL DAILY DOSE : 200 MG
     Dates: start: 20090430
  19. FLUNITRAZEPAM [Concomitant]
     Dates: start: 20101227
  20. BROTIZOLAM [Concomitant]
     Dosage: TOTAL DAILY DOSE : 0.25 MG
     Dates: start: 20090723
  21. VOGLIBOSE [Concomitant]
     Dates: start: 20100828
  22. ATENOLOL [Concomitant]
     Dosage: TOTAL DAILY DOSE : 25 MG
     Dates: start: 20090710
  23. MUCOSTA [Concomitant]
     Dates: start: 20101102
  24. FOLIC ACID [Concomitant]
     Dosage: TOTAL DAILY DOSE : 50 MG/WEEK
     Dates: start: 20101007
  25. SENNOSIDE [Concomitant]
     Dates: start: 20110324
  26. METHOTREXATE [Concomitant]
     Dosage: TOTAL DAILY DOSE : 2 MG/WEEK
     Dates: start: 20090914
  27. CELECOXIB [Concomitant]
     Dosage: TOTAL DAILY DOSE : 200 MG
     Dates: start: 20090624
  28. CLOPIDOGREL BISULFATE [Concomitant]
     Dates: start: 20110811
  29. CYANOCOBALAMIN [Concomitant]
     Dosage: DAILY DOSE : ADEQUATE DOSE P.R.N
     Dates: start: 20110409

REACTIONS (7)
  - MYOCARDIAL ISCHAEMIA [None]
  - ATRIAL FIBRILLATION [None]
  - PRINZMETAL ANGINA [None]
  - DRUG EFFECT DECREASED [None]
  - CORONARY ARTERY STENOSIS [None]
  - VENTRICULAR EXTRASYSTOLES [None]
  - SICK SINUS SYNDROME [None]
